FAERS Safety Report 11363288 (Version 15)
Quarter: 2018Q4

REPORT INFORMATION
  Report Type: Report from Study
  Country: CA (occurrence: CA)
  Receive Date: 20150811
  Receipt Date: 20181217
  Transmission Date: 20190204
  Serious: Yes (Disabling, Other)
  Sender: FDA-Public Use
  Company Number: CA-ROCHE-1619409

PATIENT
  Age: 62 Year
  Sex: Female
  Weight: 54.4 kg

DRUGS (33)
  1. ACETAMINOPHEN. [Concomitant]
     Active Substance: ACETAMINOPHEN
     Route: 048
     Dates: start: 20161102, end: 20161102
  2. ACETAMINOPHEN. [Concomitant]
     Active Substance: ACETAMINOPHEN
     Route: 048
     Dates: start: 20110414, end: 20110414
  3. ACETAMINOPHEN. [Concomitant]
     Active Substance: ACETAMINOPHEN
     Route: 048
     Dates: start: 20110428, end: 20110428
  4. ACETAMINOPHEN. [Concomitant]
     Active Substance: ACETAMINOPHEN
     Route: 048
     Dates: start: 20161116
  5. DICLOFENAC [Concomitant]
     Active Substance: DICLOFENAC
     Indication: RHEUMATOID ARTHRITIS
     Route: 048
  6. CRANBERRY. [Concomitant]
     Active Substance: CRANBERRY
  7. AMLODIPINE [Concomitant]
     Active Substance: AMLODIPINE BESYLATE
     Route: 065
  8. ACETAMINOPHEN. [Concomitant]
     Active Substance: ACETAMINOPHEN
     Indication: PREMEDICATION
     Route: 048
     Dates: start: 20100625, end: 20110428
  9. METHYLPREDNISOLONE. [Concomitant]
     Active Substance: METHYLPREDNISOLONE
     Indication: PREMEDICATION
     Route: 042
     Dates: start: 20100625
  10. OMEGA 3 [Concomitant]
     Active Substance: OMEGA-3 FATTY ACIDS
     Route: 065
  11. NAPROXEN. [Suspect]
     Active Substance: NAPROXEN
     Indication: PAIN
     Route: 065
  12. ABATACEPT [Concomitant]
     Active Substance: ABATACEPT
  13. TYLENOL WITH CODEINE [Concomitant]
     Active Substance: ACETAMINOPHEN\CODEINE PHOSPHATE
  14. ACETAMINOPHEN. [Concomitant]
     Active Substance: ACETAMINOPHEN
     Route: 065
     Dates: start: 20161116
  15. ACETAMINOPHEN. [Concomitant]
     Active Substance: ACETAMINOPHEN
     Route: 048
     Dates: start: 20100629, end: 20100713
  16. TELMISARTAN. [Concomitant]
     Active Substance: TELMISARTAN
     Indication: HYPERTENSION
     Route: 042
  17. RITUXAN [Suspect]
     Active Substance: RITUXIMAB
     Indication: RHEUMATOID ARTHRITIS
     Dosage: DATE OF LAST DOSE: 13/JUL/2010
     Route: 042
     Dates: start: 20100625
  18. RITUXAN [Suspect]
     Active Substance: RITUXIMAB
     Dosage: LATEST DOSE ON 15/NOV/2017
     Route: 042
     Dates: start: 20171101
  19. DIPHENHYDRAMINE HCL [Concomitant]
     Active Substance: DIPHENHYDRAMINE HYDROCHLORIDE
     Route: 048
     Dates: start: 20100629
  20. ARTHROTEC [Concomitant]
     Active Substance: DICLOFENAC SODIUM\MISOPROSTOL
  21. LEFLUNOMIDE. [Concomitant]
     Active Substance: LEFLUNOMIDE
     Indication: RHEUMATOID ARTHRITIS
     Route: 048
     Dates: start: 201208
  22. ORENCIA [Concomitant]
     Active Substance: ABATACEPT
  23. DIPHENHYDRAMINE HCL [Concomitant]
     Active Substance: DIPHENHYDRAMINE HYDROCHLORIDE
     Indication: PREMEDICATION
     Route: 048
     Dates: start: 20100625
  24. ZOPLICONE [Concomitant]
     Active Substance: ZOPICLONE
     Route: 048
  25. OMEGA 3 [Concomitant]
     Active Substance: OMEGA-3 FATTY ACIDS
  26. RITUXAN [Suspect]
     Active Substance: RITUXIMAB
     Dosage: DAY 1; 15
     Route: 042
     Dates: start: 20100629
  27. ACETAMINOPHEN. [Concomitant]
     Active Substance: ACETAMINOPHEN
     Dosage: UP TO 6 TIMES DAILY
     Route: 048
  28. METHYLPREDNISOLONE. [Concomitant]
     Active Substance: METHYLPREDNISOLONE
     Route: 042
     Dates: start: 20100629
  29. ARAVA [Concomitant]
     Active Substance: LEFLUNOMIDE
  30. GABAPENTIN. [Concomitant]
     Active Substance: GABAPENTIN
  31. RITUXAN [Suspect]
     Active Substance: RITUXIMAB
     Route: 042
     Dates: start: 20110414, end: 20110428
  32. NEXIUM [Concomitant]
     Active Substance: ESOMEPRAZOLE MAGNESIUM
     Route: 048
  33. VOLTAREN [Concomitant]
     Active Substance: DICLOFENAC SODIUM

REACTIONS (26)
  - Drug ineffective [Unknown]
  - Tender joint count [Unknown]
  - Cough [Not Recovered/Not Resolved]
  - Tendon disorder [Unknown]
  - Impaired healing [Not Recovered/Not Resolved]
  - Joint injury [Recovered/Resolved with Sequelae]
  - Bone lesion [Unknown]
  - Arthrodesis [Unknown]
  - Infection [Unknown]
  - Musculoskeletal stiffness [Unknown]
  - Bone erosion [Unknown]
  - Weight decreased [Unknown]
  - Blood pressure fluctuation [Unknown]
  - Nasopharyngitis [Recovering/Resolving]
  - Fatigue [Recovering/Resolving]
  - Lower respiratory tract infection [Recovered/Resolved]
  - Sputum discoloured [Not Recovered/Not Resolved]
  - Arthritis infective [Not Recovered/Not Resolved]
  - Arthropathy [Not Recovered/Not Resolved]
  - Clostridium difficile infection [Recovered/Resolved]
  - Hypertension [Unknown]
  - Pain [Unknown]
  - Device failure [Unknown]
  - Joint swelling [Unknown]
  - Nodule [Unknown]
  - Heart rate irregular [Unknown]

NARRATIVE: CASE EVENT DATE: 201111
